FAERS Safety Report 4312049-8 (Version None)
Quarter: 2004Q1

REPORT INFORMATION
  Report Type: 
  Country: None (occurrence: None)
  Receive Date: 20040303
  Receipt Date: 20040220
  Transmission Date: 20041129
  Serious: Yes (Other)
  Sender: FDA-Public Use
  Company Number: 04-0011-PO

PATIENT
  Age: 37 Year
  Sex: Female

DRUGS (1)
  1. MEFANAMIC ACID / PONSTEL NDA 15-034 [Suspect]
     Dosage: PO
     Route: 048

REACTIONS (3)
  - BLOOD THYROID STIMULATING HORMONE INCREASED [None]
  - LABORATORY TEST ABNORMAL [None]
  - PITUITARY TUMOUR [None]
